FAERS Safety Report 4770991-8 (Version None)
Quarter: 2005Q3

REPORT INFORMATION
  Report Type: 
  Country: None (occurrence: None)
  Receive Date: 20050915
  Receipt Date: 20050411
  Transmission Date: 20060218
  Serious: Yes (Disabling, Other)
  Sender: FDA-Public Use
  Company Number: PHNR2005AU00742

PATIENT
  Age: 56 Year
  Sex: Male

DRUGS (7)
  1. GLEEVEC [Suspect]
     Indication: CHRONIC MYELOID LEUKAEMIA
     Dosage: 400 MG, QD
     Route: 048
     Dates: start: 20040204, end: 20050803
  2. GLEEVEC [Suspect]
     Dosage: 400 MG, QD
     Route: 048
     Dates: start: 20050815
  3. XANAX [Concomitant]
  4. CIPRAMIL [Concomitant]
  5. TEVETEN [Concomitant]
  6. UREMIDE [Concomitant]
  7. EDRONAX [Concomitant]

REACTIONS (5)
  - ARTHRALGIA [None]
  - ASEPTIC NECROSIS BONE [None]
  - BURSITIS [None]
  - JOINT EFFUSION [None]
  - OEDEMA [None]
